FAERS Safety Report 22540482 (Version 3)
Quarter: 2023Q4

REPORT INFORMATION
  Report Type: Report from Study
  Country: CN (occurrence: CN)
  Receive Date: 20230609
  Receipt Date: 20231028
  Transmission Date: 20240110
  Serious: Yes (Hospitalization)
  Sender: FDA-Public Use
  Company Number: CN-HENLIUS-23CN009844

PATIENT
  Age: 49 Year
  Sex: Female
  Weight: 61 kg

DRUGS (23)
  1. DOCETAXEL [Suspect]
     Active Substance: DOCETAXEL
     Indication: HER2 positive breast cancer
     Dosage: Q3W, IV DRIP
     Route: 042
     Dates: start: 20230420, end: 20230420
  2. TRASTUZUMAB [Suspect]
     Active Substance: TRASTUZUMAB
     Indication: HER2 positive breast cancer
     Dosage: 472 MILLIGRAM, Q3W, IV DRIP?STRENGTH: 150 MG
     Route: 042
     Dates: start: 20230420, end: 20230420
  3. ADEMETIONINE [Concomitant]
     Active Substance: ADEMETIONINE
     Indication: Hepatobiliary disorder prophylaxis
     Dosage: 1 GRAM, BID, ENTERIC TABLET
     Route: 048
     Dates: start: 20230423, end: 20230428
  4. GRANISETRON [Concomitant]
     Active Substance: GRANISETRON
     Indication: Hepatobiliary disorder prophylaxis
     Dosage: 1 MILLIGRAM, BID
     Route: 048
     Dates: start: 20230423, end: 20230506
  5. UNSPECIFIED INGREDIENT [Concomitant]
     Active Substance: UNSPECIFIED INGREDIENT
     Indication: Gastrointestinal disorder prophylaxis
     Dosage: 3 TABLETS, TID
     Route: 048
     Dates: start: 20230423, end: 20230506
  6. PROMETHAZINE [Concomitant]
     Active Substance: PROMETHAZINE HYDROCHLORIDE
     Indication: Antiemetic supportive care
     Route: 030
     Dates: start: 20230420, end: 20230420
  7. DEXAMETHASONE [Concomitant]
     Active Substance: DEXAMETHASONE
     Indication: Prophylaxis
     Dosage: ONCE
     Route: 042
     Dates: start: 20230420
  8. DOLASETRON [Concomitant]
     Active Substance: DOLASETRON
     Indication: Antiemetic supportive care
     Dosage: OD
     Route: 042
     Dates: start: 20230420, end: 20230423
  9. GLUTATHIONE [Concomitant]
     Active Substance: GLUTATHIONE
     Indication: Prophylaxis
     Dosage: BID
     Route: 042
     Dates: start: 20230420, end: 20230423
  10. METHYLCOBALAMIN [Concomitant]
     Active Substance: METHYLCOBALAMIN
     Indication: Prophylaxis
     Dosage: TID
     Route: 048
     Dates: start: 20230419, end: 20230423
  11. MAGNESIUM ALUMINUM SILICATE [Concomitant]
     Active Substance: MAGNESIUM ALUMINUM SILICATE
     Indication: Prophylaxis
     Dosage: TID
     Route: 048
     Dates: start: 20230419, end: 20230423
  12. RABEPRAZOLE SODIUM [Concomitant]
     Active Substance: RABEPRAZOLE SODIUM
     Indication: Prophylaxis
     Dosage: QD
     Route: 042
     Dates: start: 20230420, end: 20230420
  13. INVERT SUGAR [Concomitant]
     Active Substance: INVERT SUGAR
     Indication: Fluid replacement
     Dosage: BID
     Route: 042
     Dates: start: 20230420, end: 20230423
  14. FRUCTOSE [Concomitant]
     Active Substance: FRUCTOSE
     Indication: Fluid replacement
     Dosage: BID
     Route: 042
     Dates: start: 20230420, end: 20230423
  15. CALCITONIN SALMON [Concomitant]
     Active Substance: CALCITONIN SALMON
     Indication: Osteoporosis prophylaxis
     Dosage: QD
     Route: 030
     Dates: start: 20230420, end: 20230423
  16. ESTAZOLAM [Concomitant]
     Active Substance: ESTAZOLAM
     Indication: Insomnia
     Dosage: ONCE
     Route: 048
     Dates: start: 20230421, end: 20230421
  17. APREPITANT [Concomitant]
     Active Substance: APREPITANT
     Dosage: QD
     Route: 048
     Dates: start: 20230420
  18. APREPITANT [Concomitant]
     Active Substance: APREPITANT
     Route: 048
     Dates: start: 20230421, end: 20230422
  19. TRASTUZUMAB [Suspect]
     Active Substance: TRASTUZUMAB
     Indication: HER2 positive breast cancer
     Dosage: 354 MILLIGRAM, Q3W, IV DRIP??STRENGTH: 150 MILLIGRAM
     Route: 042
  20. TRASTUZUMAB [Suspect]
     Active Substance: TRASTUZUMAB
     Indication: HER2 positive breast cancer
     Dosage: 354 MILLIGRAM, Q3W, IV DRIP?STRENGTH: 150 MG
     Route: 042
     Dates: start: 20230627, end: 20230627
  21. DOCETAXEL [Suspect]
     Active Substance: DOCETAXEL
     Indication: HER2 positive breast cancer
     Dosage: Q3W, IV DRIP
     Route: 042
  22. DOCETAXEL [Suspect]
     Active Substance: DOCETAXEL
     Indication: HER2 positive breast cancer
     Dosage: Q3W, IV DRIP
     Route: 042
     Dates: start: 20230627, end: 20230627
  23. ESTAZOLAM [Concomitant]
     Active Substance: ESTAZOLAM
     Indication: Insomnia
     Dosage: ONCE
     Route: 048
     Dates: start: 20230422, end: 20230422

REACTIONS (5)
  - Alanine aminotransferase increased [Recovered/Resolved]
  - Aspartate aminotransferase increased [Recovered/Resolved]
  - Gamma-glutamyltransferase increased [Recovered/Resolved]
  - Blood alkaline phosphatase increased [Recovered/Resolved]
  - Blood lactate dehydrogenase increased [Recovered/Resolved]

NARRATIVE: CASE EVENT DATE: 20230421
